FAERS Safety Report 18538473 (Version 2)
Quarter: 2020Q4

REPORT INFORMATION
  Report Type: Spontaneous
  Country: JP (occurrence: JP)
  Receive Date: 20201123
  Receipt Date: 20201208
  Transmission Date: 20210114
  Serious: Yes (Hospitalization)
  Sender: FDA-Public Use
  Company Number: JP-ROCHE-2718230

PATIENT
  Age: 2 Decade
  Sex: Male
  Weight: 47 kg

DRUGS (3)
  1. HEMLIBRA [Suspect]
     Active Substance: EMICIZUMAB-KXWH
     Dosage: DOSAGE IS UNCERTAIN.
     Route: 058
     Dates: start: 20190816, end: 20200920
  2. HEMLIBRA [Suspect]
     Active Substance: EMICIZUMAB-KXWH
     Indication: FACTOR VIII DEFICIENCY
     Dosage: DOSAGE IS UNCERTAIN.
     Route: 058
     Dates: start: 20190719, end: 20190809
  3. ADVATE [Concomitant]
     Active Substance: ANTIHEMOPHILIC FACTOR, HUMAN RECOMBINANT
     Dosage: 2000, ONCE A DAY AT THE TIME OF HAEMORRHAGE
     Route: 042
     Dates: start: 20190107

REACTIONS (2)
  - Lymphoma [Not Recovered/Not Resolved]
  - Rash [Not Recovered/Not Resolved]

NARRATIVE: CASE EVENT DATE: 202005
